FAERS Safety Report 12870536 (Version 1)
Quarter: 2016Q4

REPORT INFORMATION
  Report Type: Spontaneous
  Country: US (occurrence: US)
  Receive Date: 20161020
  Receipt Date: 20161020
  Transmission Date: 20170207
  Serious: No
  Sender: FDA-Public Use
  Company Number: None

PATIENT
  Age: 9 Year
  Sex: Male
  Weight: 35.1 kg

DRUGS (5)
  1. OMEGA 3/6 [Concomitant]
  2. LORATADINE. [Concomitant]
     Active Substance: LORATADINE
  3. FLOVENT [Concomitant]
     Active Substance: FLUTICASONE PROPIONATE
  4. MULTIVITAMIN [Concomitant]
     Active Substance: VITAMINS
  5. ADDERALL XR [Suspect]
     Active Substance: AMPHETAMINE ASPARTATE\AMPHETAMINE SULFATE\DEXTROAMPHETAMINE SACCHARATE\DEXTROAMPHETAMINE SULFATE
     Indication: ATTENTION DEFICIT/HYPERACTIVITY DISORDER
     Dosage: QUANTITY:1 CAPSULE(S); ORAL?
     Route: 048
     Dates: start: 20160922

REACTIONS (3)
  - Condition aggravated [None]
  - Reaction to colouring [None]
  - Psychomotor hyperactivity [None]

NARRATIVE: CASE EVENT DATE: 20161012
